FAERS Safety Report 8038010-8 (Version None)
Quarter: 2012Q1

REPORT INFORMATION
  Report Type: 
  Country: None (occurrence: None)
  Receive Date: 20120111
  Receipt Date: 20120103
  Transmission Date: 20120608
  Serious: Yes (Other)
  Sender: FDA-Public Use
  Company Number: US-ASTRAZENECA-2012SE00428

PATIENT
  Age: 52 Year
  Sex: Female

DRUGS (2)
  1. LISINOPRIL [Suspect]
     Route: 048
  2. CALATDRYL [Concomitant]
     Dosage: TOPICAL SKIN
     Route: 061

REACTIONS (2)
  - EYE SWELLING [None]
  - HYPERTENSION [None]
